FAERS Safety Report 5196157-8 (Version None)
Quarter: 2007Q1

REPORT INFORMATION
  Report Type: 
  Country: None (occurrence: None)
  Receive Date: 20070102
  Receipt Date: 20061218
  Transmission Date: 20070707
  Serious: Yes (Other)
  Sender: FDA-Public Use
  Company Number: JP-ELI_LILLY_AND_COMPANY-JP200611001992

PATIENT
  Age: 77 Year
  Sex: Female
  Weight: 69 kg

DRUGS (11)
  1. EVISTA [Suspect]
     Indication: OSTEOPOROSIS POSTMENOPAUSAL
     Dosage: 60 MG, DAILY (1/D)
     Route: 048
     Dates: start: 20060101, end: 20061107
  2. NORVASC [Concomitant]
     Dosage: 5 MG, DAILY (1/D)
     Route: 048
  3. TANATRIL ^TANABE^ [Concomitant]
     Dosage: 2.5 MG, DAILY (1/D)
     Route: 048
  4. MAINTATE [Concomitant]
     Dosage: 5 MG, DAILY (1/D)
     Route: 048
  5. SUNRYTHM [Concomitant]
     Dosage: 50 MG, DAILY (1/D)
     Route: 048
  6. MEVALOTIN                               /JPN/ [Concomitant]
     Dosage: 10 MG, DAILY (1/D)
     Route: 048
  7. RIZE [Concomitant]
     Dosage: 15 MG, DAILY (1/D)
     Route: 048
  8. VASOLAN [Concomitant]
     Dosage: 40 MG, DAILY (1/D)
     Route: 048
  9. PICLODIN [Concomitant]
     Dosage: 200 MG, DAILY (1/D)
     Route: 048
  10. MARZULENE S [Concomitant]
     Dosage: 2 G, DAILY (1/D)
     Route: 048
  11. NINJIN-TO [Concomitant]
     Dosage: 9 G, DAILY (1/D)
     Route: 048

REACTIONS (2)
  - ATRIAL THROMBOSIS [None]
  - LUNG ADENOCARCINOMA [None]
